FAERS Safety Report 10753042 (Version 1)
Quarter: 2015Q1

REPORT INFORMATION
  Report Type: Spontaneous
  Country: FR (occurrence: FR)
  Receive Date: 20150130
  Receipt Date: 20150130
  Transmission Date: 20150721
  Serious: Yes (Other)
  Sender: FDA-Public Use
  Company Number: FR-PFIZER INC-2014329292

PATIENT
  Age: 64 Year
  Sex: Female

DRUGS (3)
  1. LYRICA [Suspect]
     Active Substance: PREGABALIN
     Indication: NEURALGIA
     Dosage: 125 MG, DAILY (50 MG IN MORNING, 50 MG AT NOON AND 25 MG IN EVENING
     Dates: start: 201211, end: 201411
  2. TRAMADOL [Concomitant]
     Active Substance: TRAMADOL
     Dosage: UNK
     Dates: start: 201211, end: 201412
  3. DOLIPRANE [Concomitant]
     Active Substance: ACETAMINOPHEN
     Dosage: UNK
     Dates: start: 201211, end: 201501

REACTIONS (63)
  - Presyncope [Not Recovered/Not Resolved]
  - Anxiety [Not Recovered/Not Resolved]
  - Gait disturbance [Not Recovered/Not Resolved]
  - Agitation [Not Recovered/Not Resolved]
  - Dry eye [Not Recovered/Not Resolved]
  - Chills [Not Recovered/Not Resolved]
  - Feeling cold [Not Recovered/Not Resolved]
  - Joint swelling [Unknown]
  - Musculoskeletal stiffness [Unknown]
  - Myalgia [Unknown]
  - Arrhythmia [Not Recovered/Not Resolved]
  - Muscle contracture [Not Recovered/Not Resolved]
  - Vision blurred [Not Recovered/Not Resolved]
  - Clumsiness [Not Recovered/Not Resolved]
  - Constipation [Unknown]
  - Cardiac disorder [Not Recovered/Not Resolved]
  - Fatigue [Not Recovered/Not Resolved]
  - Sleep disorder [Not Recovered/Not Resolved]
  - Back pain [Not Recovered/Not Resolved]
  - Neck pain [Not Recovered/Not Resolved]
  - Dysphagia [Not Recovered/Not Resolved]
  - Eye irritation [Unknown]
  - Palpitations [Not Recovered/Not Resolved]
  - Dyspnoea [Not Recovered/Not Resolved]
  - Hyperhidrosis [Not Recovered/Not Resolved]
  - Muscle spasms [Not Recovered/Not Resolved]
  - Amnesia [Not Recovered/Not Resolved]
  - Rash [Not Recovered/Not Resolved]
  - Somnolence [Not Recovered/Not Resolved]
  - Confusional state [Not Recovered/Not Resolved]
  - Nausea [Not Recovered/Not Resolved]
  - Weight decreased [Not Recovered/Not Resolved]
  - Dysgraphia [Not Recovered/Not Resolved]
  - Pain [Unknown]
  - Arthralgia [Unknown]
  - Pain in extremity [Unknown]
  - Blood pressure increased [Not Recovered/Not Resolved]
  - Chest discomfort [Not Recovered/Not Resolved]
  - Dizziness postural [Not Recovered/Not Resolved]
  - Aphasia [Not Recovered/Not Resolved]
  - Middle insomnia [Not Recovered/Not Resolved]
  - Irritability [Not Recovered/Not Resolved]
  - Eye pain [Not Recovered/Not Resolved]
  - Withdrawal syndrome [Not Recovered/Not Resolved]
  - Pruritus [Not Recovered/Not Resolved]
  - Balance disorder [Not Recovered/Not Resolved]
  - Hypokinesia [Not Recovered/Not Resolved]
  - Hypoaesthesia [Unknown]
  - Eye inflammation [Not Recovered/Not Resolved]
  - Tachycardia [Not Recovered/Not Resolved]
  - Dizziness [Not Recovered/Not Resolved]
  - Gastrointestinal disorder [Not Recovered/Not Resolved]
  - Disturbance in attention [Not Recovered/Not Resolved]
  - Speech disorder [Not Recovered/Not Resolved]
  - Asthenia [Not Recovered/Not Resolved]
  - Diplopia [Unknown]
  - Psychomotor hyperactivity [Unknown]
  - Tremor [Not Recovered/Not Resolved]
  - Dyskinesia [Not Recovered/Not Resolved]
  - Vertigo [Unknown]
  - Dry mouth [Unknown]
  - Restlessness [Unknown]
  - Visual impairment [Unknown]

NARRATIVE: CASE EVENT DATE: 20150115
